FAERS Safety Report 4295700-0 (Version None)
Quarter: 2004Q1

REPORT INFORMATION
  Report Type: 
  Country: None (occurrence: None)
  Receive Date: 20040216
  Receipt Date: 20040212
  Transmission Date: 20041129
  Serious: Yes (Hospitalization)
  Sender: FDA-Public Use
  Company Number: US-GLAXOSMITHKLINE-A0497973A

PATIENT
  Sex: Male

DRUGS (2)
  1. THORAZINE [Suspect]
     Indication: ILL-DEFINED DISORDER
  2. WELLBUTRIN SR [Suspect]
     Indication: ILL-DEFINED DISORDER
     Dosage: 150MG TWICE PER DAY
     Route: 048

REACTIONS (2)
  - AGITATION [None]
  - COMA [None]
